FAERS Safety Report 6663190-6 (Version None)
Quarter: 2010Q2

REPORT INFORMATION
  Report Type: 
  Country: None (occurrence: None)
  Receive Date: 20100401
  Receipt Date: 20100319
  Transmission Date: 20101027
  Serious: Yes (Hospitalization, Other)
  Sender: FDA-Public Use
  Company Number: PHHY2009JP54410

PATIENT
  Age: 87 Year
  Sex: Female

DRUGS (14)
  1. RASILEZ [Suspect]
     Indication: HYPERTENSION
     Dosage: 150 MG DAILY
     Route: 048
     Dates: start: 20091104, end: 20091120
  2. CHOUTOUSAN [Concomitant]
     Dosage: 3 DF, UNK
     Route: 048
     Dates: start: 20091028
  3. INFREE S [Concomitant]
     Dosage: 3 DF DAILY
     Route: 048
  4. FLUVASTATIN [Concomitant]
     Dosage: 30 MG DAILY
     Route: 048
  5. ZETIA [Concomitant]
     Dosage: UNK
     Route: 048
  6. ARICEPT [Concomitant]
     Dosage: 5 MG DAILY
     Route: 048
  7. PLETAL [Concomitant]
     Dosage: 200 MG DAILY
     Route: 048
     Dates: start: 20091028
  8. MUCOSTA [Concomitant]
     Dosage: 3 DF DAILY
     Route: 048
     Dates: start: 20091028
  9. MICARDIS [Concomitant]
     Dosage: 2 DF DAILY
     Route: 048
     Dates: start: 20091028
  10. NINJIN-TO [Concomitant]
     Dosage: 2.1 G
     Route: 048
  11. BOUIOUGITOU [Concomitant]
     Dosage: 3 DF
     Route: 048
     Dates: start: 20091104
  12. MUCOBRON [Concomitant]
     Dosage: 10 ML
  13. FUROSEMIDE [Concomitant]
     Dosage: 20 MG DAILY
     Dates: start: 20091126
  14. SPIRONOLACTONE [Concomitant]
     Dosage: TWO TABLETS
     Dates: start: 20091126

REACTIONS (4)
  - CARDIAC ASTHMA [None]
  - CARDIOMEGALY [None]
  - COUGH [None]
  - PULMONARY CONGESTION [None]
